FAERS Safety Report 16835180 (Version 3)
Quarter: 2020Q1

REPORT INFORMATION
  Report Type: Spontaneous
  Country: US (occurrence: US)
  Receive Date: 20190920
  Receipt Date: 20200313
  Transmission Date: 20200409
  Serious: No
  Sender: FDA-Public Use
  Company Number: US-SA-2019SA262224

PATIENT
  Age: 7 Year
  Sex: Female
  Weight: 21.7 kg

DRUGS (1)
  1. CABLIVI [Suspect]
     Active Substance: CAPLACIZUMAB-YHDP
     Indication: THROMBOTIC MICROANGIOPATHY
     Dosage: 5.5 MG, QD
     Route: 058

REACTIONS (3)
  - Medical device site haemorrhage [Unknown]
  - Epistaxis [Recovered/Resolved]
  - Injection site erythema [Recovered/Resolved]
